FAERS Safety Report 4945690-X (Version None)
Quarter: 2006Q1

REPORT INFORMATION
  Report Type: 
  Country: None (occurrence: None)
  Receive Date: 20060316
  Receipt Date: 20060308
  Transmission Date: 20060701
  Serious: Yes (Death)
  Sender: FDA-Public Use
  Company Number: DE-AVENTIS-200610642DE

PATIENT

DRUGS (6)
  1. DOCETAXEL [Suspect]
     Indication: SQUAMOUS CELL CARCINOMA
     Route: 042
  2. CISPLATIN [Suspect]
     Indication: SQUAMOUS CELL CARCINOMA
  3. FLUOROURACIL [Suspect]
     Indication: SQUAMOUS CELL CARCINOMA
  4. DEXAMETHASONE TAB [Concomitant]
     Route: 048
  5. DEXAMETHASONE TAB [Concomitant]
     Route: 042
  6. ONDANSETRON [Concomitant]
     Route: 042

REACTIONS (1)
  - MYOCARDIAL INFARCTION [None]
